FAERS Safety Report 4912188-4 (Version None)
Quarter: 2006Q1

REPORT INFORMATION
  Report Type: 
  Country: None (occurrence: None)
  Receive Date: 20060215
  Receipt Date: 20050914
  Transmission Date: 20060701
  Serious: No
  Sender: FDA-Public Use
  Company Number: US-GLAXOSMITHKLINE-A0574260A

PATIENT
  Age: 38 Year
  Sex: Female

DRUGS (5)
  1. VALTREX [Suspect]
     Dosage: 2G TWICE PER DAY
     Route: 048
  2. PAXIL CR [Concomitant]
  3. DDAVP [Concomitant]
  4. SYNTHROID [Concomitant]
  5. RITALIN [Concomitant]

REACTIONS (4)
  - FLUID RETENTION [None]
  - HEADACHE [None]
  - MALAISE [None]
  - NAUSEA [None]
